FAERS Safety Report 6731335-5 (Version None)
Quarter: 2010Q2

REPORT INFORMATION
  Report Type: 
  Country: None (occurrence: None)
  Receive Date: 20100517
  Receipt Date: 20100517
  Transmission Date: 20101027
  Serious: Yes (Other)
  Sender: FDA-Public Use
  Company Number: None

PATIENT
  Age: 36 Year
  Sex: Female
  Weight: 113.3993 kg

DRUGS (1)
  1. CIPROFLOXACIN HCL [Suspect]
     Indication: BACTERIAL TEST POSITIVE
     Dosage: 1 OBLONG WHITE C94 500 MG 2 TIMES A DAY PO
     Route: 048
     Dates: start: 20100505, end: 20100515

REACTIONS (5)
  - ABDOMINAL PAIN [None]
  - FATIGUE [None]
  - JOINT DISLOCATION [None]
  - SWELLING [None]
  - TENDON DISORDER [None]
